FAERS Safety Report 20186465 (Version 1)
Quarter: 2021Q4

REPORT INFORMATION
  Report Type: Spontaneous
  Country: US (occurrence: US)
  Receive Date: 20211215
  Receipt Date: 20211215
  Transmission Date: 20220303
  Serious: No
  Sender: FDA-Public Use
  Company Number: US-RECKITT BENCKISER HEALTHCARE INT LIMITED-RB-91546-2021

PATIENT
  Age: 51 Year
  Sex: Female

DRUGS (2)
  1. CEPACOL [Suspect]
     Active Substance: BENZOCAINE
     Indication: Malaise
     Dosage: UNK
     Route: 065
     Dates: start: 2021
  2. DELSYM [Suspect]
     Active Substance: DEXTROMETHORPHAN
     Indication: Malaise
     Dosage: UNK
     Route: 065
     Dates: start: 2021

REACTIONS (1)
  - Drug ineffective for unapproved indication [Not Recovered/Not Resolved]

NARRATIVE: CASE EVENT DATE: 20210101
